FAERS Safety Report 4557227-8 (Version None)
Quarter: 2005Q1

REPORT INFORMATION
  Report Type: 
  Country: None (occurrence: None)
  Receive Date: 20050118
  Receipt Date: 20050107
  Transmission Date: 20050727
  Serious: Yes (Hospitalization)
  Sender: FDA-Public Use
  Company Number: 032-0981-M0000088

PATIENT
  Age: 63 Year
  Sex: Female
  Weight: 82.8 kg

DRUGS (9)
  1. ATORVASTATIN (ATORVASTATIN) [Suspect]
     Indication: CORONARY ARTERY DISEASE
     Dosage: 10 MG (1 IN 1 D), ORAL
     Route: 048
     Dates: start: 19981009, end: 19981210
  2. ATORVASTATIN (ATORVASTATIN) [Suspect]
     Indication: CORONARY ARTERY DISEASE
     Dosage: 10 MG (1 IN 1 D), ORAL
     Route: 048
     Dates: start: 19981211
  3. ASPIRIN [Concomitant]
  4. TRIAMTERENE (TRIAMTERENE) [Concomitant]
  5. FUROSEMIDE [Concomitant]
  6. DOSULEPIN HYDROCHLORIDE (DOSULEPIN HYDROCHLORIDE) [Concomitant]
  7. DILTIAZEM [Concomitant]
  8. ISOSORBIDE DINITRATE [Concomitant]
  9. SULPIRIDE (SULPIRIDE) [Concomitant]

REACTIONS (2)
  - ATRIAL FIBRILLATION [None]
  - VIRAL PERICARDITIS [None]
